FAERS Safety Report 5428465-7 (Version None)
Quarter: 2007Q3

REPORT INFORMATION
  Report Type: 
  Country: None (occurrence: None)
  Receive Date: 20070824
  Receipt Date: 20070820
  Transmission Date: 20080115
  Serious: Yes (Life-Threatening)
  Sender: FDA-Public Use
  Company Number: 2007SP014099

PATIENT
  Age: 39 Year
  Sex: Female

DRUGS (5)
  1. ASMANEX TWISTHALER [Suspect]
     Indication: ASTHMA
     Dosage: 1 DF; ONCE; PO
     Route: 048
  2. ELMIRON [Concomitant]
  3. PROTONIX [Concomitant]
  4. XOPENEX [Concomitant]
  5. RHINOCORT [Concomitant]

REACTIONS (8)
  - CHEST DISCOMFORT [None]
  - DYSPNOEA [None]
  - ERYTHEMA [None]
  - FEELING HOT [None]
  - FLUSHING [None]
  - HYPERHIDROSIS [None]
  - PALPITATIONS [None]
  - WHEEZING [None]
